FAERS Safety Report 9268021 (Version 1)
Quarter: 2013Q2

REPORT INFORMATION
  Report Type: Spontaneous
  Country: US (occurrence: US)
  Receive Date: 20130502
  Receipt Date: 20130502
  Transmission Date: 20140414
  Serious: No
  Sender: FDA-Public Use
  Company Number: US-ALEXION-A201201536

PATIENT
  Age: 49 Year
  Sex: Female
  Weight: 84.1 kg

DRUGS (34)
  1. SOLIRIS 300MG [Suspect]
     Indication: PAROXYSMAL NOCTURNAL HAEMOGLOBINURIA
     Dosage: UNK
     Route: 042
     Dates: start: 201004
  2. VITAMIN B12 [Concomitant]
     Dosage: UNK, Q4W
  3. SINGULAIR [Concomitant]
     Dosage: 10 MG, QD
  4. HYDROXYZINE [Concomitant]
     Indication: PRURITUS
     Dosage: 25 MG, PRN 1-2 TABS Q6H
  5. AMBIEN [Concomitant]
     Indication: SLEEP DISORDER
     Dosage: 10 MG, PRN QHS
  6. ZANAFLEX [Concomitant]
     Dosage: 4 MG, PRN 1-3 (RARELY)
  7. ZANTAC [Concomitant]
     Indication: DYSPEPSIA
     Dosage: 150 MG, PRN
  8. ZANTAC [Concomitant]
     Indication: URTICARIA
  9. MUCINEX D [Concomitant]
     Dosage: 1 DF, PRN BID 60-600 MG
  10. EPIPEN [Concomitant]
     Indication: ANAPHYLACTIC REACTION
     Dosage: 1 DF, PRN 0.3 MG/0.3 ML (1:1000)
  11. LOTEMAX [Concomitant]
     Dosage: 0.5% SUSP
     Route: 047
  12. PREDNISONE [Concomitant]
     Dosage: 5 MG, QD
     Route: 048
  13. HYDROXYCHLOROQUINE SULFATE [Concomitant]
     Dosage: 400 MG, QD
  14. ASPIRIN [Concomitant]
     Dosage: 81 MG, QD
     Route: 048
  15. FLOVENT [Concomitant]
     Dosage: 1 DF, QD 44 MCG/ACT AERO
     Route: 048
  16. MUPIROCIN [Concomitant]
     Dosage: 2%
  17. ARNICA [Concomitant]
     Dosage: UNK
  18. LOVAZA [Concomitant]
     Dosage: 1 G, BID
     Route: 048
  19. WELLBUTRIN XL [Concomitant]
     Dosage: 300 MG, QD
  20. ALBUTEROL [Concomitant]
     Indication: DYSPNOEA
     Dosage: 2 DF, QID
  21. ALLERGY SHOTS [Concomitant]
     Dosage: UNK
  22. CLARINEX [Concomitant]
     Dosage: 1 DF, QD
     Route: 048
  23. VOLTAREN [Concomitant]
     Dosage: 1%
  24. ALEVE [Concomitant]
     Dosage: 220 MG, PRN
     Route: 048
  25. CALCIUM + VITAMIN D [Concomitant]
     Dosage: 600-125 MG
  26. COENZYME Q10 [Concomitant]
     Dosage: 60 MG, QD
     Route: 048
  27. SUDAFED 12 HOUR [Concomitant]
     Dosage: 1 DF, PRN
     Route: 048
  28. NASONEX [Concomitant]
     Dosage: UNK
  29. PAXIL [Concomitant]
     Dosage: 20 MG, QD
     Route: 048
  30. ADDERALL [Concomitant]
     Dosage: 20 MG, PRN QD
  31. DOCUSATE SODIUM [Concomitant]
     Indication: FAECES HARD
     Dosage: UNK, PRN
  32. ACIDOPHILUS [Concomitant]
     Dosage: UNK, PRN
  33. METADATE [Concomitant]
     Dosage: 20 MG, BID
  34. DOXYCYCLINE HYCLATE [Concomitant]
     Dosage: 100 MG, BID
     Route: 048

REACTIONS (6)
  - Sinus headache [Recovering/Resolving]
  - Dermatitis herpetiformis [Recovering/Resolving]
  - Rash papular [Recovering/Resolving]
  - Skin ulcer [Recovering/Resolving]
  - Abdominal distension [Recovered/Resolved]
  - Rash pruritic [Recovering/Resolving]
